FAERS Safety Report 10389787 (Version 1)
Quarter: 2014Q1

REPORT INFORMATION
  Report Type: Spontaneous
  Country: US (occurrence: None)
  Receive Date: 20140306
  Receipt Date: 20140306
  Transmission Date: 20141002
  Serious: Yes (Other)
  Sender: FDA-Public Use
  Company Number: 163-21880-13092373

PATIENT
  Age: 67 Year
  Sex: Male
  Weight: 45.81 kg

DRUGS (9)
  1. REVLIMID (LENALIDOMIDE)(15 MILLIGRAM, CAPSULES) [Suspect]
     Indication: PLASMA CELL MYELOMA
     Dosage: 21 IN 28 D
     Route: 048
     Dates: start: 201301
  2. BENICAR(OLMESARTAN MEDOXOMIL)(UNKNOWN) [Concomitant]
  3. INDOMETHACIN(INDOMETACIN)(UNKNOWN) [Concomitant]
  4. FISH OIL(FISH OIL)(UNKNOWN)? [Concomitant]
  5. MULTI FOR HIM(MULTI)(UNKNOWN)? [Concomitant]
  6. VITAMIN C(ASCORBIC ACID)(UNKNOWN) [Concomitant]
  7. VITAMIN E(TOCOPHEROL)(UNKNOWN) [Concomitant]
  8. CHONDROITIN SULFATE(CHONDROITIN SULFATE)(UNKNOWN) [Concomitant]
  9. GLUCOSAMINE RELIEF(GLUCOSAMINE)(UNKNOWN) [Concomitant]

REACTIONS (2)
  - Pancytopenia [None]
  - Gout [None]
